FAERS Safety Report 8244091-9 (Version None)
Quarter: 2012Q1

REPORT INFORMATION
  Report Type: 
  Country: None (occurrence: None)
  Receive Date: 20120329
  Receipt Date: 20120323
  Transmission Date: 20120608
  Serious: Yes (Hospitalization, Other)
  Sender: FDA-Public Use
  Company Number: FR-BRISTOL-MYERS SQUIBB COMPANY-16387003

PATIENT
  Age: 64 Year
  Sex: Female
  Weight: 67 kg

DRUGS (2)
  1. YERVOY [Suspect]
     Indication: MALIGNANT MELANOMA STAGE IV
     Dosage: 03JAN12 RECEIVED 3RD INFUSION, 24JAN12 4TH INF PRODUCT STRENGTH IS 5MG/ML
     Dates: start: 20111122, end: 20120124
  2. PYOSTACINE [Suspect]
     Indication: DERMO-HYPODERMITIS
     Dosage: RESTARTED 20JAN12
     Route: 048
     Dates: start: 20120103, end: 20120118

REACTIONS (3)
  - DERMO-HYPODERMITIS [None]
  - PSEUDOMEMBRANOUS COLITIS [None]
  - DIARRHOEA [None]
